FAERS Safety Report 8983250 (Version 1)
Quarter: 2012Q4

REPORT INFORMATION
  Report Type: 
  Country: US (occurrence: US)
  Receive Date: 20121224
  Receipt Date: 20121224
  Transmission Date: 20130627
  Serious: No
  Sender: FDA-Public Use
  Company Number: PHEH2012US025183

PATIENT
  Age: 74 Year
  Sex: Female

DRUGS (8)
  1. TASIGNA [Suspect]
     Indication: CHRONIC MYELOID LEUKAEMIA
     Dosage: 400 mg, BID
     Route: 048
     Dates: start: 20120718, end: 20121218
  2. RESTASIS [Interacting]
     Indication: DRY EYE
  3. METFORMIN [Concomitant]
  4. L-THYROXINE [Concomitant]
  5. SIMVASTATIN [Concomitant]
  6. POTASSIUM [Concomitant]
  7. VITAMIN D [Concomitant]
  8. CALCIUM [Concomitant]

REACTIONS (1)
  - Drug interaction [Unknown]
